FAERS Safety Report 6834534-7 (Version None)
Quarter: 2010Q3

REPORT INFORMATION
  Report Type: 
  Country: None (occurrence: None)
  Receive Date: 20100712
  Receipt Date: 20070424
  Transmission Date: 20110219
  Serious: No
  Sender: FDA-Public Use
  Company Number: US-PFIZER INC-2007034294

PATIENT
  Sex: Female
  Weight: 56.363 kg

DRUGS (5)
  1. CHANTIX [Suspect]
     Indication: SMOKING CESSATION THERAPY
     Dates: start: 20070417
  2. METFORMIN HCL [Concomitant]
  3. CARDIOVASCULAR SYSTEM DRUGS [Concomitant]
  4. ANTIDEPRESSANTS [Concomitant]
  5. OPHTHALMOLOGICALS [Concomitant]

REACTIONS (2)
  - INCREASED UPPER AIRWAY SECRETION [None]
  - ROTATOR CUFF SYNDROME [None]
